FAERS Safety Report 4845740-5 (Version None)
Quarter: 2005Q4

REPORT INFORMATION
  Report Type: 
  Country: None (occurrence: None)
  Receive Date: 20051206
  Receipt Date: 20051109
  Transmission Date: 20060501
  Serious: Yes (Hospitalization, Other)
  Sender: FDA-Public Use
  Company Number: GB-AMGEN-UK157405

PATIENT
  Age: 50 Year
  Sex: Male

DRUGS (11)
  1. ARANESP [Suspect]
     Indication: RENAL FAILURE CHRONIC
     Route: 058
     Dates: start: 20020901
  2. CALCICHEW-D3 FORTE [Concomitant]
     Route: 065
  3. FOLIC ACID [Concomitant]
     Route: 065
  4. LANSOPRAZOLE [Concomitant]
     Route: 065
  5. PERINDOPRIL [Concomitant]
     Route: 065
  6. CALCITRIOL [Concomitant]
     Route: 048
  7. FELODIPINE [Concomitant]
     Route: 065
  8. FUROSEMIDE [Concomitant]
     Route: 065
  9. MIXTARD HUMAN 70/30 [Concomitant]
     Route: 065
  10. SEVELAMER HCL [Concomitant]
     Route: 048
  11. HYDROXOCOBALAMIN [Concomitant]
     Route: 030

REACTIONS (6)
  - APLASIA PURE RED CELL [None]
  - COOMBS TEST POSITIVE [None]
  - EPISTAXIS [None]
  - STAPHYLOCOCCAL SEPSIS [None]
  - THERAPEUTIC RESPONSE DECREASED [None]
  - VASCULAR ACCESS COMPLICATION [None]
